FAERS Safety Report 5448767-8 (Version None)
Quarter: 2007Q3

REPORT INFORMATION
  Report Type: 
  Country: None (occurrence: None)
  Receive Date: 20070911
  Receipt Date: 20070611
  Transmission Date: 20080115
  Serious: No
  Sender: FDA-Public Use
  Company Number: US-BRISTOL-MYERS SQUIBB COMPANY-13717830

PATIENT
  Age: 66 Year
  Sex: Female
  Weight: 59 kg

DRUGS (10)
  1. EMSAM [Suspect]
     Indication: DEPRESSION
     Dosage: INITIAL DOSE 6MG/24HR, INCREASED TO 9MG/24HR NDC 39506-033-11 LOT 6P0045 EXP APR08
     Dates: start: 20061123
  2. KLONOPIN [Concomitant]
  3. AMBIEN [Concomitant]
  4. LEVOXYL [Concomitant]
  5. NORCO [Concomitant]
  6. GABAPENTIN [Concomitant]
  7. LEVOTHYROXINE SODIUM [Concomitant]
  8. LISINOPRIL [Concomitant]
  9. HYDROCODONE TARTRATE+ACETAMINOPHEN [Concomitant]
  10. RAMELTEON [Concomitant]

REACTIONS (8)
  - AGITATION [None]
  - ANXIETY [None]
  - CHEST DISCOMFORT [None]
  - HEADACHE [None]
  - INSOMNIA [None]
  - PALPITATIONS [None]
  - URTICARIA [None]
  - WEIGHT INCREASED [None]
